FAERS Safety Report 13681347 (Version 1)
Quarter: 2017Q2

REPORT INFORMATION
  Report Type: Spontaneous
  Country: US (occurrence: US)
  Receive Date: 20170623
  Receipt Date: 20170623
  Transmission Date: 20170830
  Serious: Yes (Other)
  Sender: FDA-Public Use
  Company Number: US-TEVA-780384ACC

PATIENT
  Age: 30 Year
  Sex: Female
  Weight: 57.2 kg

DRUGS (1)
  1. PARAGARD T 380A [Suspect]
     Active Substance: COPPER
     Indication: CONTRACEPTION
     Dates: start: 20161212, end: 20170610

REACTIONS (4)
  - Vulvovaginal pruritus [Unknown]
  - Bacterial vaginosis [Unknown]
  - Smear vaginal abnormal [Unknown]
  - Device dislocation [Recovered/Resolved]

NARRATIVE: CASE EVENT DATE: 20170610
